FAERS Safety Report 23238499 (Version 1)
Quarter: 2023Q4

REPORT INFORMATION
  Report Type: Spontaneous
  Country: FR (occurrence: FR)
  Receive Date: 20231129
  Receipt Date: 20231129
  Transmission Date: 20240110
  Serious: Yes (Hospitalization)
  Sender: FDA-Public Use
  Company Number: None

PATIENT
  Age: 57 Year
  Sex: Female
  Weight: 62 kg

DRUGS (3)
  1. CARBOPLATIN [Suspect]
     Active Substance: CARBOPLATIN
     Indication: Lung adenocarcinoma
     Dosage: 600 MG
     Route: 042
     Dates: start: 20230505, end: 20230505
  2. IOMERON [Suspect]
     Active Substance: IOMEPROL
     Indication: High-resolution computerised tomogram of lung
     Dosage: 50 DF
     Route: 042
     Dates: start: 20230505, end: 20230505
  3. PEMETREXED [Suspect]
     Active Substance: PEMETREXED
     Indication: Lung adenocarcinoma
     Dosage: 875 MG
     Route: 042
     Dates: start: 20230505, end: 20230505

REACTIONS (1)
  - Rash maculo-papular [Recovered/Resolved]

NARRATIVE: CASE EVENT DATE: 20230510
